FAERS Safety Report 7194324-5 (Version None)
Quarter: 2010Q4

REPORT INFORMATION
  Report Type: 
  Country: None (occurrence: None)
  Receive Date: 20101223
  Receipt Date: 20101221
  Transmission Date: 20110411
  Serious: Yes (Hospitalization)
  Sender: FDA-Public Use
  Company Number: US-US-EMD SERONO, INC.-7031104

PATIENT
  Sex: Female
  Weight: 58 kg

DRUGS (11)
  1. REBIF [Suspect]
     Indication: MULTIPLE SCLEROSIS
     Route: 058
     Dates: start: 20090501, end: 20101101
  2. REBIF [Suspect]
     Route: 058
     Dates: start: 20101101
  3. IBUPROFEN [Concomitant]
     Indication: PAIN
     Route: 048
     Dates: start: 20081201
  4. ALBUTEROL [Concomitant]
     Indication: ASTHMA
     Route: 055
     Dates: start: 20090601
  5. ESTRADIOL [Concomitant]
     Indication: HOT FLUSH
     Route: 048
     Dates: start: 20081201
  6. RANITIDINE [Concomitant]
     Indication: GASTROOESOPHAGEAL REFLUX DISEASE
     Route: 048
     Dates: start: 20101101
  7. GABAPENTIN [Concomitant]
     Indication: PAIN
     Route: 048
     Dates: start: 20101101
  8. ALPRAZOLAM [Concomitant]
     Indication: ANXIETY
     Route: 048
  9. VICODIN [Concomitant]
     Indication: PAIN
     Route: 048
     Dates: start: 20101101
  10. SERTRALINE HYDROCHLORIDE [Concomitant]
     Indication: DEPRESSION
     Route: 048
     Dates: start: 20101101
  11. TRAZODONE [Concomitant]
     Indication: INSOMNIA
     Route: 048
     Dates: start: 20101101

REACTIONS (7)
  - ANXIETY [None]
  - BLOOD GLUCOSE INCREASED [None]
  - CYST [None]
  - DEPRESSION [None]
  - HEPATIC STEATOSIS [None]
  - LIVER FUNCTION TEST ABNORMAL [None]
  - MULTIPLE SCLEROSIS RELAPSE [None]
